FAERS Safety Report 5423154-7 (Version None)
Quarter: 2007Q3

REPORT INFORMATION
  Report Type: 
  Country: None (occurrence: None)
  Receive Date: 20070821
  Receipt Date: 20070809
  Transmission Date: 20080115
  Serious: Yes (Hospitalization)
  Sender: FDA-Public Use
  Company Number: GXKR2007AT06851

PATIENT
  Age: 23 Year
  Sex: Female

DRUGS (15)
  1. MIRTAZAPINE [Suspect]
     Indication: DEPRESSION
     Dosage: 30 MG, QD, ORAL
     Route: 048
     Dates: start: 20060102, end: 20060208
  2. RISPERDAL [Suspect]
     Dosage: 4 MG, QD, ORAL, 6 MG, QD, ORAL, 4 MG, QD, ORAL
     Route: 048
     Dates: start: 20060102, end: 20060102
  3. RISPERDAL [Suspect]
     Dosage: 4 MG, QD, ORAL, 6 MG, QD, ORAL, 4 MG, QD, ORAL
     Route: 048
     Dates: start: 20060103, end: 20060116
  4. RISPERDAL [Suspect]
     Dosage: 4 MG, QD, ORAL, 6 MG, QD, ORAL, 4 MG, QD, ORAL
     Route: 048
     Dates: start: 20060117
  5. LORAZEPAM [Suspect]
     Dosage: 5 MG, ORAL, 7.5 MG, ORAL, 7.5 MG, ORAL, 3.5 MG, ORAL, 2.5 MG, ORAL
     Route: 048
     Dates: start: 20060102, end: 20060102
  6. LORAZEPAM [Suspect]
     Dosage: 5 MG, ORAL, 7.5 MG, ORAL, 7.5 MG, ORAL, 3.5 MG, ORAL, 2.5 MG, ORAL
     Route: 048
     Dates: start: 20060103, end: 20060104
  7. LORAZEPAM [Suspect]
     Dosage: 5 MG, ORAL, 7.5 MG, ORAL, 7.5 MG, ORAL, 3.5 MG, ORAL, 2.5 MG, ORAL
     Route: 048
     Dates: start: 20060130, end: 20060217
  8. LORAZEPAM [Suspect]
     Dosage: 5 MG, ORAL, 7.5 MG, ORAL, 7.5 MG, ORAL, 3.5 MG, ORAL, 2.5 MG, ORAL
     Route: 048
     Dates: start: 20060218, end: 20060301
  9. LORAZEPAM [Suspect]
     Dosage: 5 MG, ORAL, 7.5 MG, ORAL, 7.5 MG, ORAL, 3.5 MG, ORAL, 2.5 MG, ORAL
     Route: 048
     Dates: start: 20060302, end: 20060306
  10. DEPAKENE [Suspect]
     Dosage: 100 MG, ORAL, 800 MG, ORAL
     Route: 048
     Dates: start: 20060103, end: 20060129
  11. DEPAKENE [Suspect]
     Dosage: 100 MG, ORAL, 800 MG, ORAL
     Route: 048
     Dates: start: 20060130, end: 20060306
  12. TRITTICO                 (TRAZODONE HYDROCHLORIDE) [Concomitant]
  13. MOVICOL   (MACROGOL, POTASSIUM CHLORIDE, SODIUM BICARBONATE, SODIUM CH [Concomitant]
  14. GEWACALM        (DIAZEPAM) [Concomitant]
  15. LEGALON             (SILYBUM MARIANUM) [Concomitant]

REACTIONS (3)
  - HEPATIC STEATOSIS [None]
  - HEPATOCELLULAR DAMAGE [None]
  - HYPERTRIGLYCERIDAEMIA [None]
